FAERS Safety Report 11562769 (Version 1)
Quarter: 2015Q3

REPORT INFORMATION
  Report Type: Spontaneous
  Country: JP (occurrence: JP)
  Receive Date: 20150928
  Receipt Date: 20150928
  Transmission Date: 20151125
  Serious: Yes (Death)
  Sender: FDA-Public Use
  Company Number: JP-PFIZER INC-2015308835

PATIENT
  Age: 69 Year
  Sex: Male

DRUGS (1)
  1. XALKORI [Suspect]
     Active Substance: CRIZOTINIB
     Indication: NON-SMALL CELL LUNG CANCER
     Dosage: 250 MG, 1X/DAY
     Route: 048
     Dates: start: 20150901, end: 20150901

REACTIONS (3)
  - Circulatory collapse [Fatal]
  - Disease progression [Fatal]
  - Non-small cell lung cancer [Fatal]

NARRATIVE: CASE EVENT DATE: 20150902
